FAERS Safety Report 25796103 (Version 1)
Quarter: 2025Q3

REPORT INFORMATION
  Report Type: Report from Study
  Country: EU (occurrence: EU)
  Receive Date: 20250912
  Receipt Date: 20250912
  Transmission Date: 20251020
  Serious: Yes (Other)
  Sender: UCB
  Company Number: EU-UCBSA-2025013693

PATIENT
  Age: 31 Year
  Sex: Male
  Weight: 52 kg

DRUGS (11)
  1. BIMEKIZUMAB [Suspect]
     Active Substance: BIMEKIZUMAB
     Indication: Axial spondyloarthritis
     Dosage: 160 MILLIGRAM, MONTHLY (QM)
     Route: 058
     Dates: start: 20241211
  2. VITAMIN D NOS [Concomitant]
     Active Substance: CHOLECALCIFEROL\ERGOCALCIFEROL
     Indication: Prophylaxis
  3. TRAMADOL [Concomitant]
     Active Substance: TRAMADOL
     Indication: Axial spondyloarthritis
     Dosage: 100 MILLIGRAM, 2X/DAY (BID)
     Dates: start: 20250526, end: 20250606
  4. ESOMEPRAZOLE [Concomitant]
     Active Substance: ESOMEPRAZOLE
     Indication: Gastrointestinal disorder
     Dosage: 20 MILLIGRAM, ONCE DAILY (QD)
     Dates: start: 20250606, end: 20250612
  5. PREDNISOLONE ACETATE [Concomitant]
     Active Substance: PREDNISOLONE ACETATE
     Indication: Axial spondyloarthritis
     Dosage: 2 MILLILITER, ONCE DAILY (QD)
     Dates: start: 20250130, end: 20250130
  6. DICLOFENAC [Concomitant]
     Active Substance: DICLOFENAC
     Indication: Axial spondyloarthritis
     Dosage: 75 MILLIGRAM, 2X/DAY (BID)
     Dates: start: 20250121
  7. PIROXICAM [Concomitant]
     Active Substance: PIROXICAM
     Indication: Axial spondyloarthritis
     Dates: start: 20241211, end: 20250121
  8. ADALIMUMAB [Concomitant]
     Active Substance: ADALIMUMAB
     Indication: Axial spondyloarthritis
     Dates: start: 20240924, end: 20241211
  9. CELECOXIB [Concomitant]
     Active Substance: CELECOXIB
     Indication: Axial spondyloarthritis
     Dosage: 100 MILLIGRAM, 2X/DAY (BID)
     Dates: start: 20250526, end: 20250606
  10. CHOLECALCIFEROL [Concomitant]
     Active Substance: CHOLECALCIFEROL
     Indication: Prophylaxis
     Dosage: 50000 INTERNATIONAL UNIT, MONTHLY (QM)
     Dates: start: 20240814
  11. PREDNISONE [Concomitant]
     Active Substance: PREDNISONE
     Indication: Axial spondyloarthritis
     Dosage: 60 MILLIGRAM, ONCE DAILY (QD)
     Dates: start: 20250606, end: 20250608

REACTIONS (8)
  - Gastritis erosive [Recovering/Resolving]
  - Fungal oesophagitis [Recovered/Resolved]
  - Asthenia [Not Recovered/Not Resolved]
  - Dry eye [Recovered/Resolved]
  - Oral candidiasis [Recovered/Resolved]
  - Oral fungal infection [Recovered/Resolved]
  - Gastrointestinal disorder [Recovering/Resolving]
  - Hiatus hernia [Not Recovered/Not Resolved]

NARRATIVE: CASE EVENT DATE: 20250101
